FAERS Safety Report 9078086 (Version 1)
Quarter: 2013Q1

REPORT INFORMATION
  Report Type: Report from Study
  Country: US (occurrence: US)
  Receive Date: 20130130
  Receipt Date: 20130130
  Transmission Date: 20140127
  Serious: No
  Sender: FDA-Public Use
  Company Number: US-ABBOTT-12P-163-0977364-00

PATIENT
  Age: 23 Year
  Sex: Male

DRUGS (7)
  1. HUMIRA [Suspect]
     Indication: CROHN^S DISEASE
     Dates: start: 20120905
  2. PREDNISONE [Concomitant]
     Indication: CROHN^S DISEASE
  3. PREDNISONE [Concomitant]
  4. PREDNISONE [Concomitant]
  5. AMITRIPTYLINE [Concomitant]
     Indication: GASTROINTESTINAL MOTILITY DISORDER
  6. MEN^S MULTIVITAMIN [Concomitant]
     Indication: ROUTINE HEALTH MAINTENANCE
  7. VITAMIN D [Concomitant]
     Indication: ROUTINE HEALTH MAINTENANCE

REACTIONS (4)
  - Wrong technique in drug usage process [Unknown]
  - Incorrect dose administered [Unknown]
  - Injection site pain [Recovered/Resolved]
  - Injection site haemorrhage [Unknown]
